FAERS Safety Report 23145701 (Version 2)
Quarter: 2023Q4

REPORT INFORMATION
  Report Type: Report from Study
  Country: CN (occurrence: CN)
  Receive Date: 20231103
  Receipt Date: 20231115
  Transmission Date: 20240109
  Serious: Yes (Hospitalization)
  Sender: FDA-Public Use
  Company Number: CN-JNJFOC-20231068955

PATIENT
  Age: 59 Year
  Sex: Male
  Weight: 76 kg

DRUGS (14)
  1. AMIVANTAMAB [Suspect]
     Active Substance: AMIVANTAMAB
     Indication: Non-small cell lung cancer metastatic
     Route: 042
     Dates: start: 20220810, end: 20231008
  2. PEMETREXED [Suspect]
     Active Substance: PEMETREXED
     Indication: Non-small cell lung cancer metastatic
     Route: 042
     Dates: start: 20220810, end: 20231008
  3. CARBOPLATIN [Concomitant]
     Active Substance: CARBOPLATIN
     Indication: Non-small cell lung cancer metastatic
     Route: 042
     Dates: start: 20220810, end: 20221025
  4. DOMPERIDONE [Concomitant]
     Active Substance: DOMPERIDONE
     Indication: Abdominal distension
     Route: 048
     Dates: start: 20210801
  5. HEROMBOPAG OLAMINE [Concomitant]
     Indication: Platelet count decreased
     Route: 048
     Dates: start: 20220818
  6. HEROMBOPAG OLAMINE [Concomitant]
     Route: 048
     Dates: start: 20220824
  7. LORATADINE [Concomitant]
     Active Substance: LORATADINE
     Indication: Rash
     Route: 048
     Dates: start: 20220824
  8. TOBRAMYCIN [Concomitant]
     Active Substance: TOBRAMYCIN
     Indication: Conjunctivitis
     Route: 047
     Dates: start: 20220830
  9. HYDROCORTISONE BUTYRATE [Concomitant]
     Active Substance: HYDROCORTISONE BUTYRATE
     Indication: Rash
     Dosage: RIGHT AMOUNT
     Route: 048
     Dates: start: 20220907
  10. VIOLET [Concomitant]
     Indication: Skin erosion
     Route: 062
     Dates: start: 20230417
  11. ETHACRIDINE [Concomitant]
     Active Substance: ETHACRIDINE
     Indication: Rash
     Route: 050
     Dates: start: 20230722
  12. RIVAROXABAN [Concomitant]
     Active Substance: RIVAROXABAN
     Indication: Deep vein thrombosis
     Route: 048
     Dates: start: 20231006
  13. ALBUMIN HUMAN [Concomitant]
     Active Substance: ALBUMIN HUMAN
     Indication: Hypoalbuminaemia
     Route: 042
     Dates: start: 20231007
  14. ENTERAL NUTRITIONAL EMULSION (TP-HE) [Concomitant]
     Indication: Nutritional supplementation
     Route: 048
     Dates: start: 20230905

REACTIONS (1)
  - Cellulitis [Recovering/Resolving]

NARRATIVE: CASE EVENT DATE: 20231021
